FAERS Safety Report 14092789 (Version 1)
Quarter: 2017Q4

REPORT INFORMATION
  Report Type: Spontaneous
  Country: CH (occurrence: CH)
  Receive Date: 20171016
  Receipt Date: 20171016
  Transmission Date: 20180321
  Serious: Yes (Other)
  Sender: FDA-Public Use
  Company Number: CH-ROCHE-2004890

PATIENT
  Age: 79 Year
  Sex: Male
  Weight: 77 kg

DRUGS (13)
  1. ROCEPHIN [Suspect]
     Active Substance: CEFTRIAXONE SODIUM
     Indication: SURGERY
     Route: 042
     Dates: start: 20170817, end: 20170821
  2. SIMVASTATIN. [Concomitant]
     Active Substance: SIMVASTATIN
     Route: 065
  3. PERFALGAN [Concomitant]
     Active Substance: ACETAMINOPHEN
     Indication: PROCEDURAL PAIN
     Route: 042
     Dates: start: 20170817, end: 20170820
  4. RIVAROXABAN [Concomitant]
     Active Substance: RIVAROXABAN
  5. METRONIDAZOLE B BRAUN [Suspect]
     Active Substance: METRONIDAZOLE
     Indication: SURGERY
     Route: 042
     Dates: start: 20170817, end: 20170821
  6. NOVALGIN (SWITZERLAND) [Suspect]
     Active Substance: DIPYRONE
     Indication: PROCEDURAL PAIN
     Dosage: MOST RECENT DOSE ON 20/AUG/2017.
     Route: 042
     Dates: start: 20170817
  7. RAMIPRIL HCT [Suspect]
     Active Substance: HYDROCHLOROTHIAZIDE\RAMIPRIL
     Indication: HYPERTENSION
     Dosage: STRENGTH: 5/25 MG.
     Route: 048
     Dates: start: 20170819
  8. ALFUZOSIN AXAPHARM [Suspect]
     Active Substance: ALFUZOSIN
     Indication: BENIGN PROSTATIC HYPERPLASIA
     Route: 048
  9. ENOXAPARIN [Concomitant]
     Active Substance: ENOXAPARIN
  10. AMLODIPIN PFIZER [Concomitant]
     Active Substance: AMLODIPINE BESYLATE
     Indication: HYPERTENSION
     Route: 048
     Dates: start: 20170819
  11. CANDESARTAN. [Suspect]
     Active Substance: CANDESARTAN
     Indication: HYPERTENSION
     Route: 048
     Dates: start: 20170819
  12. ATORVASTATIN MEPHA [Suspect]
     Active Substance: ATORVASTATIN
     Indication: PRODUCT USED FOR UNKNOWN INDICATION
     Route: 048
     Dates: start: 20170819
  13. CLEXANE [Concomitant]
     Active Substance: ENOXAPARIN SODIUM
     Indication: SURGERY
     Route: 058
     Dates: start: 20170817, end: 20170824

REACTIONS (3)
  - Anxiety [Recovered/Resolved]
  - Hallucination, visual [Recovered/Resolved]
  - Confusional state [Recovered/Resolved]

NARRATIVE: CASE EVENT DATE: 20170821
